FAERS Safety Report 16786771 (Version 1)
Quarter: 2019Q3

REPORT INFORMATION
  Report Type: Spontaneous
  Country: US (occurrence: US)
  Receive Date: 20190909
  Receipt Date: 20190909
  Transmission Date: 20191005
  Serious: No
  Sender: FDA-Public Use
  Company Number: US-JNJFOC-20190908319

PATIENT
  Sex: Female

DRUGS (19)
  1. FOLIC ACID. [Concomitant]
     Active Substance: FOLIC ACID
     Route: 065
  2. NPH INSULIN [Concomitant]
     Active Substance: INSULIN BEEF
     Route: 065
  3. JANUVIA [Concomitant]
     Active Substance: SITAGLIPTIN PHOSPHATE
     Route: 065
  4. METHOTREXATE. [Concomitant]
     Active Substance: METHOTREXATE
  5. DIGOXIN. [Concomitant]
     Active Substance: DIGOXIN
  6. VITAMIN D                          /00107901/ [Concomitant]
     Active Substance: ERGOCALCIFEROL
  7. PROTONIX [Concomitant]
     Active Substance: PANTOPRAZOLE SODIUM
     Route: 065
  8. REMICADE [Suspect]
     Active Substance: INFLIXIMAB
     Indication: PRODUCT USED FOR UNKNOWN INDICATION
     Route: 042
  9. ACYCLOVIR. [Concomitant]
     Active Substance: ACYCLOVIR
     Route: 065
  10. PLAVIX [Concomitant]
     Active Substance: CLOPIDOGREL BISULFATE
     Route: 065
  11. ULORIC [Concomitant]
     Active Substance: FEBUXOSTAT
     Route: 065
  12. ALDACTONE [Concomitant]
     Active Substance: SPIRONOLACTONE
     Route: 065
  13. BUMEX [Concomitant]
     Active Substance: BUMETANIDE
     Route: 065
  14. COREG [Concomitant]
     Active Substance: CARVEDILOL
     Route: 065
  15. PROLIA [Concomitant]
     Active Substance: DENOSUMAB
     Route: 065
  16. TRAMADOL. [Concomitant]
     Active Substance: TRAMADOL
     Route: 065
  17. ACTEMRA [Concomitant]
     Active Substance: TOCILIZUMAB
     Route: 065
  18. PREDNISONE. [Concomitant]
     Active Substance: PREDNISONE
  19. CALCIUM                            /00405001/ [Concomitant]

REACTIONS (1)
  - Cyst [Unknown]
